FAERS Safety Report 9849018 (Version 1)
Quarter: 2014Q1

REPORT INFORMATION
  Report Type: Spontaneous
  Country: US (occurrence: None)
  Receive Date: 20140127
  Receipt Date: 20140127
  Transmission Date: 20141002
  Serious: Yes (Other)
  Sender: FDA-Public Use
  Company Number: None

PATIENT
  Age: 45 Year
  Sex: Male
  Weight: 84.82 kg

DRUGS (1)
  1. LEXAPRO [Suspect]
     Indication: ANXIETY
     Route: 048

REACTIONS (1)
  - Eczema [None]
